FAERS Safety Report 8433944-4 (Version None)
Quarter: 2012Q2

REPORT INFORMATION
  Report Type: 
  Country: None (occurrence: None)
  Receive Date: 20120613
  Receipt Date: 20120607
  Transmission Date: 20120825
  Serious: Yes (Other)
  Sender: FDA-Public Use
  Company Number: JP-PFIZER INC-2012136680

PATIENT

DRUGS (1)
  1. GABAPENTIN [Suspect]
     Dosage: 400 MG, 1X/DAY
     Route: 048

REACTIONS (1)
  - PANCREATIC DISORDER [None]
